FAERS Safety Report 5969524-X (Version None)
Quarter: 2008Q4

REPORT INFORMATION
  Report Type: 
  Country: None (occurrence: None)
  Receive Date: 20081126
  Receipt Date: 20080909
  Transmission Date: 20090506
  Serious: No
  Sender: FDA-Public Use
  Company Number: US-ABBOTT-08P-163-0475330-00

PATIENT
  Sex: Male

DRUGS (7)
  1. SIMCOR [Suspect]
     Indication: BLOOD CHOLESTEROL INCREASED
     Dates: start: 20080801
  2. AMLODIPINE MALEATE [Concomitant]
     Indication: DRUG USE FOR UNKNOWN INDICATION
  3. DULOXETINE HYDROCHLORIDE [Concomitant]
     Indication: DRUG USE FOR UNKNOWN INDICATION
  4. DICLOFENAC DIETHYLAMINE [Concomitant]
     Indication: DRUG USE FOR UNKNOWN INDICATION
  5. ATORVASTATIN CALCIUM [Concomitant]
     Indication: DRUG USE FOR UNKNOWN INDICATION
  6. KLOR-CON [Concomitant]
     Indication: DRUG USE FOR UNKNOWN INDICATION
  7. FUROSEMIDE [Concomitant]
     Indication: DRUG USE FOR UNKNOWN INDICATION

REACTIONS (1)
  - FLUSHING [None]
